FAERS Safety Report 25150803 (Version 3)
Quarter: 2025Q2

REPORT INFORMATION
  Report Type: Spontaneous
  Country: US (occurrence: US)
  Receive Date: 20250402
  Receipt Date: 20250511
  Transmission Date: 20250716
  Serious: Yes (Other)
  Sender: SANOFI AVENTIS
  Company Number: US-SA-2025SA092045

PATIENT
  Age: 77 Year
  Sex: Male

DRUGS (1)
  1. DUPIXENT [Suspect]
     Active Substance: DUPILUMAB
     Indication: Chronic obstructive pulmonary disease
     Dosage: 300 MG, QOW
     Route: 058
     Dates: start: 20250306

REACTIONS (10)
  - Neuropathy peripheral [Unknown]
  - Haematochezia [Unknown]
  - Productive cough [Unknown]
  - Secretion discharge [Unknown]
  - Dyspnoea [Unknown]
  - Asthenia [Unknown]
  - Respiratory tract infection [Unknown]
  - Paraesthesia [Recovered/Resolved]
  - Eye pruritus [Recovered/Resolved]
  - Condition aggravated [Recovered/Resolved]

NARRATIVE: CASE EVENT DATE: 20250101
